FAERS Safety Report 9617538 (Version 3)
Quarter: 2013Q4

REPORT INFORMATION
  Report Type: Spontaneous
  Country: JP (occurrence: JP)
  Receive Date: 20131011
  Receipt Date: 20131105
  Transmission Date: 20140711
  Serious: Yes (Death)
  Sender: FDA-Public Use
  Company Number: JP-GLAXOSMITHKLINE-B0929275A

PATIENT
  Age: 55 Year
  Sex: Female

DRUGS (4)
  1. LAMICTAL [Suspect]
     Indication: PRODUCT USED FOR UNKNOWN INDICATION
     Route: 048
  2. INVEGA [Concomitant]
     Route: 048
  3. ZOPICLONE [Concomitant]
     Route: 048
  4. FLUNITRAZEPAM [Concomitant]
     Route: 065

REACTIONS (3)
  - Arrhythmia [Fatal]
  - Nausea [Unknown]
  - Vomiting [Unknown]
